FAERS Safety Report 18242495 (Version 2)
Quarter: 2020Q4

REPORT INFORMATION
  Report Type: Spontaneous
  Country: US (occurrence: US)
  Receive Date: 20200908
  Receipt Date: 20201230
  Transmission Date: 20210113
  Serious: No
  Sender: FDA-Public Use
  Company Number: US-SA-2020SA242150

PATIENT

DRUGS (15)
  1. AZELASTINE HYDROCHLORIDE. [Concomitant]
     Active Substance: AZELASTINE HYDROCHLORIDE
     Dosage: UNK
  2. ADDERALL [Concomitant]
     Active Substance: AMPHETAMINE ASPARTATE\AMPHETAMINE SULFATE\DEXTROAMPHETAMINE SACCHARATE\DEXTROAMPHETAMINE SULFATE
     Dosage: UNK
  3. LEXAPRO [Concomitant]
     Active Substance: ESCITALOPRAM OXALATE
     Dosage: UNK
  4. PEPCID [Concomitant]
     Active Substance: FAMOTIDINE
     Dosage: UNK
  5. ZOFRAN [Concomitant]
     Active Substance: ONDANSETRON HYDROCHLORIDE
     Dosage: UNK
  6. DUPIXENT [Suspect]
     Active Substance: DUPILUMAB
     Indication: DERMATITIS
     Dosage: 300 MG, QOW
     Route: 058
     Dates: start: 20200206
  7. ZADITOR [KETOTIFEN FUMARATE] [Concomitant]
     Dosage: UNK
  8. FLUTICASONE PROPIONATE. [Concomitant]
     Active Substance: FLUTICASONE PROPIONATE
     Dosage: UNK
  9. TOPAMAX [Concomitant]
     Active Substance: TOPIRAMATE
     Dosage: UNK
  10. EPINEPHRINE. [Concomitant]
     Active Substance: EPINEPHRINE
  11. GUANFACINE HCL [Concomitant]
     Active Substance: GUANFACINE HYDROCHLORIDE
     Dosage: UNK
  12. ZYRTEC [Concomitant]
     Active Substance: CETIRIZINE HYDROCHLORIDE
     Dosage: UNK
  13. ATARAX [Concomitant]
     Active Substance: HYDROXYZINE HYDROCHLORIDE
     Dosage: UNK
  14. PROAIR HFA [Concomitant]
     Active Substance: ALBUTEROL SULFATE
     Dosage: UNK
  15. VITAMIN D3 [Concomitant]
     Active Substance: CHOLECALCIFEROL
     Dosage: UNK

REACTIONS (6)
  - Peripheral swelling [Unknown]
  - Pain in extremity [Unknown]
  - Ocular discomfort [Unknown]
  - Product use issue [Unknown]
  - Head discomfort [Unknown]
  - Skin discolouration [Unknown]

NARRATIVE: CASE EVENT DATE: 2020
